APPROVED DRUG PRODUCT: DEXMEDETOMIDINE HYDROCHLORIDE
Active Ingredient: DEXMEDETOMIDINE HYDROCHLORIDE
Strength: EQ 200MCG BASE/2ML (EQ 100MCG BASE/ML)
Dosage Form/Route: INJECTABLE;INJECTION
Application: A205046 | Product #001 | TE Code: AP
Applicant: HIKMA PHARMACEUTICALS USA INC
Approved: Apr 26, 2017 | RLD: No | RS: No | Type: RX